FAERS Safety Report 9612518 (Version 1)
Quarter: 2013Q4

REPORT INFORMATION
  Report Type: Spontaneous
  Country: US (occurrence: None)
  Receive Date: 20131008
  Receipt Date: 20131008
  Transmission Date: 20140711
  Serious: Yes (Hospitalization, Other)
  Sender: FDA-Public Use
  Company Number: AUR-APL-2013-08321

PATIENT
  Age: 54 Year
  Sex: Female

DRUGS (4)
  1. ESCITALOPRAM (ESCITALOPRAM) [Suspect]
     Indication: DEPRESSION
  2. TOPIRAMATE (TOPIRAMATE) [Concomitant]
  3. VALPROATE (VALPROATE SODIUM) [Concomitant]
  4. FLUNARIZINE (FLUNARIZINE) [Concomitant]

REACTIONS (2)
  - Depression [None]
  - Condition aggravated [None]
